FAERS Safety Report 19224034 (Version 2)
Quarter: 2021Q2

REPORT INFORMATION
  Report Type: Spontaneous
  Country: US (occurrence: US)
  Receive Date: 20210505
  Receipt Date: 20210615
  Transmission Date: 20210717
  Serious: Yes (Hospitalization)
  Sender: FDA-Public Use
  Company Number: US-ROCHE-2570938

PATIENT
  Sex: Male

DRUGS (3)
  1. ESBRIET [Suspect]
     Active Substance: PIRFENIDONE
     Indication: IDIOPATHIC PULMONARY FIBROSIS
     Route: 048
     Dates: start: 201911
  2. ESBRIET [Suspect]
     Active Substance: PIRFENIDONE
     Indication: IDIOPATHIC PULMONARY FIBROSIS
     Route: 048
  3. ESBRIET [Suspect]
     Active Substance: PIRFENIDONE
     Dosage: TAKE TWO CAPSULES BY MOUTH TWICE A DAY
     Route: 048

REACTIONS (15)
  - Off label use [Unknown]
  - Bronchitis [Unknown]
  - Skin discolouration [Not Recovered/Not Resolved]
  - Weight decreased [Not Recovered/Not Resolved]
  - Cough [Unknown]
  - Eye disorder [Not Recovered/Not Resolved]
  - Rash [Not Recovered/Not Resolved]
  - Dysuria [Unknown]
  - Pollakiuria [Not Recovered/Not Resolved]
  - Photosensitivity reaction [Unknown]
  - Dyspnoea [Unknown]
  - Skin discolouration [Unknown]
  - Pneumonia [Unknown]
  - Decreased appetite [Not Recovered/Not Resolved]
  - Rash [Unknown]
